FAERS Safety Report 5518345-0 (Version None)
Quarter: 2007Q4

REPORT INFORMATION
  Report Type: 
  Country: None (occurrence: None)
  Receive Date: 20071115
  Receipt Date: 20071025
  Transmission Date: 20080405
  Serious: Yes (Hospitalization)
  Sender: FDA-Public Use
  Company Number: GB-ROCHE-527903

PATIENT
  Age: 46 Year
  Sex: Female
  Weight: 91 kg

DRUGS (6)
  1. ORLISTAT [Suspect]
     Indication: OBESITY
     Route: 048
     Dates: start: 20070725
  2. METFORMIN HCL [Concomitant]
     Route: 048
     Dates: start: 19980101
  3. AMLODIPINE [Concomitant]
     Indication: HYPERTENSION
     Route: 048
     Dates: start: 19980101
  4. BENZYDROFLUMETHIAZIDE [Concomitant]
     Indication: HYPERTENSION
     Route: 048
     Dates: start: 19980101
  5. LOSARTAN POTASSIUM [Concomitant]
     Indication: HYPERTENSION
     Route: 048
     Dates: start: 19980101
  6. SIMVASTIN [Concomitant]
     Route: 048
     Dates: start: 19980101

REACTIONS (5)
  - DIZZINESS [None]
  - HEAD INJURY [None]
  - HEADACHE [None]
  - SYNCOPE [None]
  - VASCULITIS CEREBRAL [None]
